FAERS Safety Report 4984614-6 (Version None)
Quarter: 2006Q2

REPORT INFORMATION
  Report Type: 
  Country: None (occurrence: None)
  Receive Date: 20060426
  Receipt Date: 20060426
  Transmission Date: 20061013
  Serious: Yes (Life-Threatening)
  Sender: FDA-Public Use
  Company Number: None

PATIENT
  Age: 59 Year
  Sex: Male
  Weight: 113.6 kg

DRUGS (15)
  1. METOPROLOL SUCCINATE EXTENDED RELEASE [Suspect]
     Dosage: 25 MG  DAILY
     Dates: start: 20060124, end: 20060125
  2. LANOXIN [Concomitant]
  3. SIMVASTATIN [Concomitant]
  4. LORAZEPAM [Concomitant]
  5. FORMOTEROL FUMARATE [Concomitant]
  6. ALBUTEROL / IPRATROP [Concomitant]
  7. GUAIFENESIN [Concomitant]
  8. MONTELUKAST [Concomitant]
  9. ALBUTEROL SO4 [Concomitant]
  10. FUROSEMIDE [Concomitant]
  11. GEMFIBROZIL [Concomitant]
  12. ENALAPRIL MALEATE [Concomitant]
  13. QUETIAPINE FUMARATE [Concomitant]
  14. SERTRALINE HCL [Concomitant]
  15. NICOTINE [Concomitant]

REACTIONS (2)
  - HEART RATE IRREGULAR [None]
  - SINUS BRADYCARDIA [None]
